FAERS Safety Report 23489179 (Version 2)
Quarter: 2024Q1

REPORT INFORMATION
  Report Type: Spontaneous
  Country: JP (occurrence: JP)
  Receive Date: 20240206
  Receipt Date: 20240228
  Transmission Date: 20240409
  Serious: Yes (Other)
  Sender: FDA-Public Use
  Company Number: JP-MSD-M2024-03607

PATIENT
  Age: 34 Year
  Sex: Female

DRUGS (6)
  1. KEYTRUDA [Suspect]
     Active Substance: PEMBROLIZUMAB
     Indication: Triple negative breast cancer
     Dosage: 200 MILLIGRAM
     Route: 041
     Dates: start: 20231220, end: 20231220
  2. KEYTRUDA [Suspect]
     Active Substance: PEMBROLIZUMAB
     Dosage: 200 MILLIGRAM
     Route: 041
     Dates: start: 20240111, end: 20240111
  3. PACLITAXEL [Suspect]
     Active Substance: PACLITAXEL
     Indication: Triple negative breast cancer
     Dosage: 80 MILLIGRAM/SQ. METER, QW
     Route: 041
     Dates: start: 20231220, end: 20240125
  4. PACLITAXEL [Suspect]
     Active Substance: PACLITAXEL
     Dosage: ONE-STEP REDUCTION, QW
     Route: 041
     Dates: start: 20240201
  5. CARBOPLATIN [Suspect]
     Active Substance: CARBOPLATIN
     Indication: Triple negative breast cancer
     Dosage: AUC5, QW
     Route: 041
     Dates: start: 20231220, end: 20240125
  6. CARBOPLATIN [Suspect]
     Active Substance: CARBOPLATIN
     Dosage: ONE-STEP REDUCTION, QW
     Route: 041
     Dates: start: 20240201

REACTIONS (2)
  - Immune-mediated hepatic disorder [Recovering/Resolving]
  - Off label use [Unknown]

NARRATIVE: CASE EVENT DATE: 20240111
